FAERS Safety Report 5255707-3 (Version None)
Quarter: 2007Q1

REPORT INFORMATION
  Report Type: 
  Country: None (occurrence: None)
  Receive Date: 20070305
  Receipt Date: 20070221
  Transmission Date: 20070707
  Serious: Yes (Other)
  Sender: FDA-Public Use
  Company Number: GB-PFIZER INC-2007014689

PATIENT
  Sex: Female

DRUGS (1)
  1. ZITHROMAX [Suspect]

REACTIONS (1)
  - CONTUSION [None]
